FAERS Safety Report 4339664-X (Version None)
Quarter: 2004Q1

REPORT INFORMATION
  Report Type: 
  Country: None (occurrence: None)
  Receive Date: 20040329
  Receipt Date: 20031231
  Transmission Date: 20041129
  Serious: No
  Sender: FDA-Public Use
  Company Number: 04P-163-0246175-00

PATIENT
  Age: 71 Year
  Sex: Female

DRUGS (6)
  1. HUMIRA [Suspect]
     Indication: RHEUMATOID ARTHRITIS
     Dosage: 40 MG, 1 IN 2 WK, SUBCUTANEOUS
     Route: 058
     Dates: start: 20030923
  2. METOPROLOL SUCCINATE [Concomitant]
  3. HYDROCHLORITHIAZIDE [Concomitant]
  4. CELECOXIB [Concomitant]
  5. HYDROXYCLOROOQUINE PHOSPHATE [Concomitant]
  6. TESTOSTERONE [Concomitant]

REACTIONS (2)
  - ERYTHEMA [None]
  - SCAB [None]
